FAERS Safety Report 21671618 (Version 1)
Quarter: 2022Q4

REPORT INFORMATION
  Report Type: Spontaneous
  Country: IT (occurrence: IT)
  Receive Date: 20221202
  Receipt Date: 20221202
  Transmission Date: 20230112
  Serious: Yes (Hospitalization)
  Sender: FDA-Public Use
  Company Number: None

PATIENT
  Age: 26 Year
  Sex: Female

DRUGS (4)
  1. QUETIAPINE [Suspect]
     Active Substance: QUETIAPINE
     Dosage: REPORTED VOLUNTARY INTAKE OF 2 PACKS OF QUETIAPINE, TOTAL QUANTITY NOT?SPECIFIED.
     Dates: start: 20220925, end: 20220925
  2. FLURAZEPAM HYDROCHLORIDE [Suspect]
     Active Substance: FLURAZEPAM HYDROCHLORIDE
     Dosage: REPORTED VOLUNTARY INTAKE OF 2 PACKS OF DALMADORM, TOTAL QUANTITY NOT?SPECIFIED.
     Dates: start: 20220925, end: 20220925
  3. ZOLPIDEM TARTRATE [Suspect]
     Active Substance: ZOLPIDEM TARTRATE
     Dosage: REPORTED VOLUNTARY INTAKE OF 3 PACKS OF STILNOX TOTAL QUANTITY NOT SPECIFIED.
     Dates: start: 20220925, end: 20220925
  4. XANAX [Suspect]
     Active Substance: ALPRAZOLAM
     Dosage: REPORTED VOLUNTARY INTAKE OF 2 PACKS OF XANAX TOTAL QUANTITY NOT?SPECIFIED.
     Dates: start: 20220925, end: 20220925

REACTIONS (5)
  - Suicide attempt [Unknown]
  - Somnolence [Not Recovered/Not Resolved]
  - Intentional overdose [Unknown]
  - Sopor [Not Recovered/Not Resolved]
  - Skin abrasion [Not Recovered/Not Resolved]

NARRATIVE: CASE EVENT DATE: 20220925
